FAERS Safety Report 16852851 (Version 2)
Quarter: 2019Q4

REPORT INFORMATION
  Report Type: Spontaneous
  Country: US (occurrence: US)
  Receive Date: 20190925
  Receipt Date: 20191104
  Transmission Date: 20200122
  Serious: No
  Sender: FDA-Public Use
  Company Number: US-JNJFOC-20190928157

PATIENT
  Sex: Female

DRUGS (2)
  1. DURAGESIC [Suspect]
     Active Substance: FENTANYL
     Indication: PRODUCT USED FOR UNKNOWN INDICATION
     Route: 062
     Dates: start: 2017
  2. DURAGESIC [Suspect]
     Active Substance: FENTANYL
     Route: 062

REACTIONS (3)
  - Respiratory disorder [Recovered/Resolved]
  - Therapeutic product effect increased [Unknown]
  - Movement disorder [Unknown]

NARRATIVE: CASE EVENT DATE: 20190920
